FAERS Safety Report 17950062 (Version 2)
Quarter: 2020Q3

REPORT INFORMATION
  Report Type: Spontaneous
  Country: RU (occurrence: RU)
  Receive Date: 20200626
  Receipt Date: 20200708
  Transmission Date: 20201104
  Serious: Yes (Hospitalization, Other)
  Sender: FDA-Public Use
  Company Number: RU-SA-2020SA135434

PATIENT

DRUGS (8)
  1. POVIDONE?IODINE. [Suspect]
     Active Substance: POVIDONE-IODINE
     Indication: CERVICITIS
     Dosage: 1 SUPPEOSITORY, INTRAVAGINAL FOR 10 DAYS
  2. POTASSIUM MAGNESIUM ASPARTATE [Suspect]
     Active Substance: MAGNESIUM ASPARTATE\POTASSIUM ASPARTATE
     Dosage: 3 DF, TID, 1 TRIMESTER
     Route: 048
  3. MAGNESIUM OROTATE. [Suspect]
     Active Substance: MAGNESIUM OROTATE
     Dosage: 1 DF, TID, DURING PREGNANCY
     Route: 048
  4. CLEXANE [Suspect]
     Active Substance: ENOXAPARIN SODIUM
     Indication: VENOUS THROMBOSIS
     Dosage: UNK, FROM 5 WEEKS TO 13 WEEKS FROM 35 WEEKS COURSE10 DAYS TILL DELIVERY
     Route: 058
  5. CLOTRIMAZOLE. [Suspect]
     Active Substance: CLOTRIMAZOLE
     Indication: CERVICITIS
     Dosage: OINTMENT FOR GENITALS AND VAGINA
     Route: 065
     Dates: start: 20190904
  6. CIPROLET [CIPROFLOXACIN HYDROCHLORIDE] [Concomitant]
     Dosage: INTRANASAL
  7. SUPRAX [Concomitant]
     Active Substance: CEFIXIME
     Dosage: PER 1 PILL OVER 6 DAYS, SHE TOOK ONE PILL THE NIGHT BEFORE.
  8. ELEVIT [MINERALS NOS;VITAMINS NOS] [Concomitant]
     Indication: VITAMIN SUPPLEMENTATION
     Dosage: 1 DF, QD, IN CYCLE
     Route: 048

REACTIONS (23)
  - Asthenia [Unknown]
  - Oropharyngeal discomfort [Unknown]
  - Throat irritation [Unknown]
  - Cough [Unknown]
  - Cardiovascular disorder [Unknown]
  - Exposure during pregnancy [Unknown]
  - Respiratory tract infection [Unknown]
  - Osteochondrosis [Unknown]
  - Thrombocytopenia [Unknown]
  - Somnolence [Unknown]
  - Nasopharyngitis [Unknown]
  - Placental insufficiency [Unknown]
  - Condition aggravated [Unknown]
  - Dysphonia [Unknown]
  - Anaemia [Unknown]
  - Foetal distress syndrome [Unknown]
  - Oropharyngeal pain [Unknown]
  - Oedema [Unknown]
  - Pain in extremity [Unknown]
  - Placental disorder [Unknown]
  - Nasal congestion [Unknown]
  - Varicose vein [Unknown]
  - Bronchitis [Unknown]
